FAERS Safety Report 17763867 (Version 1)
Quarter: 2020Q2

REPORT INFORMATION
  Report Type: Spontaneous
  Country: US (occurrence: US)
  Receive Date: 20200510
  Receipt Date: 20200510
  Transmission Date: 20200714
  Serious: No
  Sender: FDA-Public Use
  Company Number: US-ASTRAZENECA-2020SE60258

PATIENT
  Sex: Male

DRUGS (1)
  1. BYDUREON BCISE [Suspect]
     Active Substance: EXENATIDE
     Dosage: UNKNOWN
     Route: 065
     Dates: start: 202004

REACTIONS (5)
  - Weight decreased [Unknown]
  - Paraesthesia [Unknown]
  - Feeling hot [Unknown]
  - Overweight [Unknown]
  - Confusional state [Unknown]

NARRATIVE: CASE EVENT DATE: 2020
